FAERS Safety Report 10170806 (Version 1)
Quarter: 2014Q2

REPORT INFORMATION
  Report Type: Spontaneous
  Country: PL (occurrence: PL)
  Receive Date: 20140514
  Receipt Date: 20140514
  Transmission Date: 20141212
  Serious: Yes (Other)
  Sender: FDA-Public Use
  Company Number: PL-JNJFOC-20140503759

PATIENT
  Age: 54 Year
  Sex: Male
  Weight: 95 kg

DRUGS (6)
  1. INFLIXIMAB, RECOMBINANT [Suspect]
     Indication: ANKYLOSING SPONDYLITIS
     Route: 042
     Dates: start: 20131108
  2. INFLIXIMAB, RECOMBINANT [Suspect]
     Indication: ANKYLOSING SPONDYLITIS
     Dosage: DOSE NO 5
     Route: 042
     Dates: start: 20130919
  3. INFLIXIMAB, RECOMBINANT [Suspect]
     Indication: ANKYLOSING SPONDYLITIS
     Route: 042
     Dates: start: 20131031
  4. CELEBREX [Concomitant]
     Dosage: DOSE NO 100
     Route: 048
     Dates: start: 201309
  5. CONTROLOC [Concomitant]
     Dosage: DOSE NO 20
     Route: 048
     Dates: start: 201304
  6. SULFASALAZIN [Concomitant]
     Dosage: DOSE NO 3
     Route: 048
     Dates: start: 201204

REACTIONS (2)
  - Skin lesion [Recovering/Resolving]
  - Acne [Recovering/Resolving]
